FAERS Safety Report 16940324 (Version 1)
Quarter: 2019Q4

REPORT INFORMATION
  Report Type: Spontaneous
  Country: CN (occurrence: CN)
  Receive Date: 20191021
  Receipt Date: 20191021
  Transmission Date: 20200122
  Serious: Yes (Other)
  Sender: FDA-Public Use
  Company Number: CN-PFIZER INC-2019443687

PATIENT
  Age: 55 Year
  Sex: Male
  Weight: 72 kg

DRUGS (3)
  1. SODIUM CHLORIDE. [Concomitant]
     Active Substance: SODIUM CHLORIDE
     Indication: URTICARIA
     Dosage: 250 ML, 1X/DAY
     Route: 041
     Dates: start: 20190928, end: 20190928
  2. SOLU-MEDROL [Suspect]
     Active Substance: METHYLPREDNISOLONE SODIUM SUCCINATE
     Indication: URTICARIA
     Dosage: 40 MG, 1X/DAY
     Route: 041
     Dates: start: 20190928, end: 20190928
  3. VITAMIN C [Concomitant]
     Active Substance: ASCORBIC ACID
     Indication: URTICARIA
     Dosage: 3 G, 1X/DAY
     Route: 041
     Dates: start: 20190928, end: 20190928

REACTIONS (3)
  - Chest discomfort [Recovering/Resolving]
  - Palpitations [Recovering/Resolving]
  - Hyperhidrosis [Recovering/Resolving]

NARRATIVE: CASE EVENT DATE: 20190928
